FAERS Safety Report 7011509-9 (Version None)
Quarter: 2010Q3

REPORT INFORMATION
  Report Type: 
  Country: None (occurrence: None)
  Receive Date: 20100923
  Receipt Date: 20090217
  Transmission Date: 20110219
  Serious: No
  Sender: FDA-Public Use
  Company Number: US-WYE-H08253109

PATIENT
  Sex: Female
  Weight: 71.73 kg

DRUGS (5)
  1. PREMARIN [Suspect]
     Indication: HORMONE REPLACEMENT THERAPY
     Route: 048
     Dates: start: 20050101, end: 20080101
  2. PREMARIN [Suspect]
     Route: 048
     Dates: start: 20080101
  3. ALTACE [Concomitant]
  4. INSULIN [Concomitant]
  5. LIPITOR [Concomitant]

REACTIONS (6)
  - BACK PAIN [None]
  - BLOOD GLUCOSE INCREASED [None]
  - DRUG INEFFECTIVE [None]
  - MASTOPTOSIS [None]
  - MEMORY IMPAIRMENT [None]
  - PELVIC PAIN [None]
